FAERS Safety Report 20129649 (Version 2)
Quarter: 2022Q1

REPORT INFORMATION
  Report Type: Report from Study
  Country: JP (occurrence: JP)
  Receive Date: 20211130
  Receipt Date: 20220228
  Transmission Date: 20220423
  Serious: Yes (Hospitalization)
  Sender: FDA-Public Use
  Company Number: JP-INSMED INCORPORATED-2021-10108-JPAA

PATIENT
  Age: 76 Year
  Sex: Male

DRUGS (1)
  1. ARIKAYCE [Suspect]
     Active Substance: AMIKACIN
     Indication: Product used for unknown indication
     Dosage: UNK
     Route: 055
     Dates: start: 2021, end: 20211110

REACTIONS (1)
  - Organising pneumonia [Unknown]

NARRATIVE: CASE EVENT DATE: 20210101
